FAERS Safety Report 6990347-7 (Version None)
Quarter: 2010Q3

REPORT INFORMATION
  Report Type: 
  Country: None (occurrence: None)
  Receive Date: 20100916
  Receipt Date: 20100527
  Transmission Date: 20110219
  Serious: Yes (Other)
  Sender: FDA-Public Use
  Company Number: US-PFIZER INC-2010067324

PATIENT
  Sex: Female
  Weight: 49.89 kg

DRUGS (1)
  1. LYRICA [Suspect]
     Indication: HERPES ZOSTER
     Dosage: 50 MG, 2X/DAY
     Route: 048
     Dates: start: 20100501, end: 20100501

REACTIONS (4)
  - CONFUSIONAL STATE [None]
  - DISSOCIATION [None]
  - FEELING ABNORMAL [None]
  - HALLUCINATION [None]
